FAERS Safety Report 4784949-6 (Version None)
Quarter: 2005Q3

REPORT INFORMATION
  Report Type: 
  Country: None (occurrence: None)
  Receive Date: 20050928
  Receipt Date: 20050802
  Transmission Date: 20060218
  Serious: Yes (Other)
  Sender: FDA-Public Use
  Company Number: 8414

PATIENT
  Age: 51 Year
  Sex: Female

DRUGS (7)
  1. SEPTOCAINE [Suspect]
     Indication: LOCAL ANAESTHESIA
     Dosage: 1.2 ML INJECTED
  2. SEPTOCAINE [Suspect]
     Indication: TOOTH DISORDER
     Dosage: 1.2 ML INJECTED
  3. LIDOCAINE [Suspect]
     Indication: LOCAL ANAESTHESIA
     Dosage: 1 CARPULE INJECTED
  4. LIDOCAINE [Suspect]
     Indication: TOOTH DISORDER
     Dosage: 1 CARPULE INJECTED
  5. BENZACAINE 20% [Suspect]
     Indication: LOCAL ANAESTHESIA
     Dosage: TOPICAL
     Route: 061
  6. HYDROCHLOROTHIAZIDE [Concomitant]
  7. NAPROXEN [Concomitant]

REACTIONS (3)
  - HYPOAESTHESIA [None]
  - PARAESTHESIA [None]
  - SWELLING FACE [None]
